FAERS Safety Report 4775578-9 (Version None)
Quarter: 2005Q3

REPORT INFORMATION
  Report Type: 
  Country: None (occurrence: None)
  Receive Date: 20050922
  Receipt Date: 20040923
  Transmission Date: 20060218
  Serious: Yes (Hospitalization, Other)
  Sender: FDA-Public Use
  Company Number: 2004SE05315

PATIENT
  Age: 28632 Day
  Sex: Female

DRUGS (12)
  1. BETALOC ZOK [Suspect]
     Indication: SUPRAVENTRICULAR TACHYCARDIA
     Route: 048
     Dates: end: 20040919
  2. CORDARONE [Suspect]
     Indication: SUPRAVENTRICULAR TACHYCARDIA
     Route: 048
     Dates: start: 20040304, end: 20040919
  3. CORDARONE [Suspect]
     Route: 048
     Dates: start: 20040920
  4. ROSUVASTATIN CODE NOT BROKEN [Suspect]
     Indication: CARDIAC FAILURE CHRONIC
     Route: 048
     Dates: start: 20040326
  5. KALIUM-DURULES [Concomitant]
     Indication: MINERAL SUPPLEMENTATION
     Route: 048
  6. DIAPREL MR [Concomitant]
     Indication: DIABETES MELLITUS
     Route: 048
     Dates: start: 20040301
  7. ADEXOR [Concomitant]
     Indication: ANGINA PECTORIS
     Route: 048
  8. QUAMATEL [Concomitant]
     Indication: DYSPEPSIA
     Route: 048
     Dates: start: 20040301
  9. NITRODUR-10 [Concomitant]
     Indication: ANGINA PECTORIS
     Route: 003
  10. ASPIRIN [Concomitant]
     Indication: ANGINA PECTORIS
     Route: 048
  11. FUROSEMIDE [Concomitant]
     Indication: CARDIAC FAILURE
     Route: 048
  12. TRITACE [Concomitant]
     Indication: HYPERTENSION
     Route: 048

REACTIONS (1)
  - SICK SINUS SYNDROME [None]
